FAERS Safety Report 8276624-0 (Version None)
Quarter: 2012Q2

REPORT INFORMATION
  Report Type: 
  Country: None (occurrence: None)
  Receive Date: 20120412
  Receipt Date: 20120404
  Transmission Date: 20120825
  Serious: Yes (Other)
  Sender: FDA-Public Use
  Company Number: PHHY2012BR029533

PATIENT
  Sex: Male

DRUGS (2)
  1. RITALIN LA [Suspect]
     Dates: start: 20120327
  2. RISPERIDONE [Suspect]

REACTIONS (1)
  - AUTISM [None]
